FAERS Safety Report 23699802 (Version 1)
Quarter: 2024Q2

REPORT INFORMATION
  Report Type: Spontaneous
  Country: GB (occurrence: GB)
  Receive Date: 20240403
  Receipt Date: 20240403
  Transmission Date: 20240716
  Serious: Yes (Disabling, Other)
  Sender: FDA-Public Use
  Company Number: None

PATIENT
  Sex: Male

DRUGS (2)
  1. FINASTERIDE [Suspect]
     Active Substance: FINASTERIDE
     Indication: Alopecia
     Dosage: 0.25 MILLIGRAM, QOD TABLET
     Route: 065
  2. FINASTERIDE [Suspect]
     Active Substance: FINASTERIDE
     Dosage: UNK (DECREASED DOSE)
     Route: 065

REACTIONS (5)
  - Anhedonia [Not Recovered/Not Resolved]
  - Genital hypoaesthesia [Recovered/Resolved]
  - Erectile dysfunction [Not Recovered/Not Resolved]
  - Libido decreased [Not Recovered/Not Resolved]
  - Testicular pain [Recovered/Resolved]

NARRATIVE: CASE EVENT DATE: 20210916
